FAERS Safety Report 18698167 (Version 1)
Quarter: 2021Q1

REPORT INFORMATION
  Report Type: Spontaneous
  Country: US (occurrence: US)
  Receive Date: 20210105
  Receipt Date: 20210105
  Transmission Date: 20210419
  Serious: No
  Sender: FDA-Public Use
  Company Number: US-LUPIN PHARMACEUTICALS INC.-2020-11261

PATIENT
  Age: 75 Year
  Sex: Male

DRUGS (3)
  1. BUDESONIDE. [Suspect]
     Active Substance: BUDESONIDE
     Indication: JEJUNAL ULCER
  2. BUDESONIDE. [Suspect]
     Active Substance: BUDESONIDE
     Indication: INTESTINAL STENOSIS
  3. BUDESONIDE. [Suspect]
     Active Substance: BUDESONIDE
     Indication: ENTERITIS
     Dosage: 9 MILLIGRAM, QD
     Route: 065

REACTIONS (1)
  - Therapy non-responder [Unknown]
